FAERS Safety Report 7334177-5 (Version None)
Quarter: 2011Q1

REPORT INFORMATION
  Report Type: 
  Country: None (occurrence: None)
  Receive Date: 20110307
  Receipt Date: 20101118
  Transmission Date: 20110831
  Serious: Yes (Other)
  Sender: FDA-Public Use
  Company Number: US-BAYER-201023239NA

PATIENT
  Sex: Female
  Weight: 77.098 kg

DRUGS (4)
  1. YASMIN [Suspect]
     Indication: ACNE
     Route: 048
  2. TETRACYCLINE [Concomitant]
  3. YASMIN [Suspect]
     Indication: PREMENSTRUAL SYNDROME
  4. ADVIL LIQUI-GELS [Concomitant]
     Indication: PAIN

REACTIONS (13)
  - ABDOMINAL PAIN UPPER [None]
  - BLOOD BILIRUBIN INCREASED [None]
  - LIVER FUNCTION TEST ABNORMAL [None]
  - BILE DUCT OBSTRUCTION [None]
  - GALLBLADDER PERFORATION [None]
  - BLOOD AMYLASE INCREASED [None]
  - BACK PAIN [None]
  - JAUNDICE [None]
  - NAUSEA [None]
  - LIPASE INCREASED [None]
  - CHOLECYSTITIS [None]
  - PANCREATITIS [None]
  - BILE DUCT STONE [None]
